FAERS Safety Report 5823909-0 (Version None)
Quarter: 2008Q3

REPORT INFORMATION
  Report Type: 
  Country: None (occurrence: None)
  Receive Date: 20080724
  Receipt Date: 20080711
  Transmission Date: 20090109
  Serious: Yes (Death)
  Sender: FDA-Public Use
  Company Number: 14885

PATIENT
  Age: 66 Year
  Sex: Male

DRUGS (3)
  1. MORPHINE SULFATE [Suspect]
     Indication: CANCER PAIN
     Dosage: 45 MG BID ORALLY
     Route: 048
     Dates: start: 20080701
  2. MORPHINE SULFATE [Suspect]
  3. MORPHINE INJECTIONS [Concomitant]

REACTIONS (5)
  - DYSSTASIA [None]
  - HYPERHIDROSIS [None]
  - PHARMACEUTICAL PRODUCT COMPLAINT [None]
  - SEDATION [None]
  - THROMBOSIS [None]
